FAERS Safety Report 24587577 (Version 1)
Quarter: 2024Q4

REPORT INFORMATION
  Report Type: Other
  Country: SA (occurrence: SA)
  Receive Date: 20241107
  Receipt Date: 20241107
  Transmission Date: 20250114
  Serious: Yes (Hospitalization)
  Sender: ALVOGEN
  Company Number: SA-ALVOGEN-2024095761

PATIENT
  Sex: Male

DRUGS (1)
  1. DEXTROAMPHETAMINE SACCHARATE, AMPHETAMINE ASPARTATE, DEXTROAMPHETAMINE [Suspect]
     Active Substance: DEXTROAMPHETAMINE SACCHARATE, AMPHETAMINE ASPARTATE, DEXTROAMPHETAMINE SULFATE AND AMPHETAMINE SULFA
     Indication: Drug abuse
     Dosage: INTAKE RANGED FROM 3 YEARS AS A MINIMUM TO A MAXIMUM OF 15 YEARS WITH A MEAN DURATION 8.13 ? 4.93.

REACTIONS (4)
  - Hepatotoxicity [Unknown]
  - Nephropathy toxic [Unknown]
  - Drug dependence [Unknown]
  - Drug abuse [Unknown]
